FAERS Safety Report 7387512-6 (Version None)
Quarter: 2011Q1

REPORT INFORMATION
  Report Type: 
  Country: None (occurrence: None)
  Receive Date: 20110331
  Receipt Date: 20110304
  Transmission Date: 20110831
  Serious: No
  Sender: FDA-Public Use
  Company Number: US-B.I. PHARMACEUTICALS,INC./RIDGEFIELD-2011-BP-06962BP

PATIENT
  Sex: Female

DRUGS (7)
  1. PRADAXA [Suspect]
     Indication: ATRIAL FIBRILLATION
     Dosage: 300 MG
     Route: 048
     Dates: start: 20110301
  2. PLAVIX [Concomitant]
     Dosage: 75 MG
     Route: 048
  3. LEXAPRO [Concomitant]
     Dosage: 10 MG
     Route: 048
  4. BYSTOLIC [Concomitant]
     Route: 048
  5. WARFARIN SODIUM [Concomitant]
     Dosage: 5 MG
     Route: 048
  6. LANSOPRAZOLE [Concomitant]
     Dosage: 30 MG
     Route: 048
  7. PRAVASTATIN [Concomitant]
     Dosage: 20 MG
     Route: 048

REACTIONS (4)
  - VAGINAL HAEMORRHAGE [None]
  - FAECAL INCONTINENCE [None]
  - FAECES DISCOLOURED [None]
  - DIARRHOEA [None]
